FAERS Safety Report 25589720 (Version 1)
Quarter: 2025Q3

REPORT INFORMATION
  Report Type: Spontaneous
  Country: EU (occurrence: EU)
  Receive Date: 20250722
  Receipt Date: 20250722
  Transmission Date: 20251021
  Serious: Yes (Congenital Anomaly)
  Sender: RANBAXY
  Company Number: EU-AFSSAPS-PV2025000135

PATIENT
  Age: 1 Day
  Sex: Male
  Weight: 2.89 kg

DRUGS (4)
  1. OXALIPLATIN [Suspect]
     Active Substance: OXALIPLATIN
     Indication: Ductal adenocarcinoma of pancreas
     Route: 064
     Dates: start: 202403, end: 20240529
  2. IRINOTECAN [Suspect]
     Active Substance: IRINOTECAN
     Indication: Ductal adenocarcinoma of pancreas
     Route: 064
     Dates: end: 20240529
  3. FLUOROURACIL [Suspect]
     Active Substance: FLUOROURACIL
     Indication: Ductal adenocarcinoma of pancreas
     Route: 064
     Dates: start: 202403, end: 20240529
  4. SPIRAMYCIN [Suspect]
     Active Substance: SPIRAMYCIN
     Indication: Toxoplasmosis
     Route: 064

REACTIONS (3)
  - Craniosynostosis [Not Recovered/Not Resolved]
  - Maternal exposure before pregnancy [Recovered/Resolved]
  - Maternal exposure during pregnancy [Recovered/Resolved]

NARRATIVE: CASE EVENT DATE: 20250101
